FAERS Safety Report 23747751 (Version 1)
Quarter: 2024Q2

REPORT INFORMATION
  Report Type: Spontaneous
  Country: US (occurrence: None)
  Receive Date: 20240416
  Receipt Date: 20240416
  Transmission Date: 20240715
  Serious: No
  Sender: FDA-Public Use
  Company Number: None

PATIENT
  Age: 52 Year
  Sex: Male
  Weight: 102 kg

DRUGS (1)
  1. CISPLATIN [Suspect]
     Active Substance: CISPLATIN
     Dates: end: 20240319

REACTIONS (6)
  - Pulmonary embolism [None]
  - Syncope [None]
  - Hypotension [None]
  - Hyponatraemia [None]
  - Therapy interrupted [None]
  - Right ventricular failure [None]

NARRATIVE: CASE EVENT DATE: 20240409
